FAERS Safety Report 9466132 (Version 3)
Quarter: 2013Q3

REPORT INFORMATION
  Report Type: Spontaneous
  Country: GB (occurrence: GB)
  Receive Date: 20130820
  Receipt Date: 20130828
  Transmission Date: 20140515
  Serious: Yes (Hospitalization, Other)
  Sender: FDA-Public Use
  Company Number: GB-TEVA-421742ISR

PATIENT
  Sex: Male
  Weight: 63.5 kg

DRUGS (7)
  1. OXCARBAZEPINE [Suspect]
     Indication: EPILEPSY
     Dosage: 900 MILLIGRAM DAILY; 200 MG TO 400 MG
     Dates: start: 201304
  2. OXCARBAZEPINE [Suspect]
     Dosage: 1200 MILLIGRAM DAILY;
     Route: 065
  3. LEVETIRACETAM [Concomitant]
     Indication: PRODUCT USED FOR UNKNOWN INDICATION
     Dosage: 500 MILLIGRAM DAILY;
  4. VITAMIN B COMPOUND STRONG [Concomitant]
     Indication: PRODUCT USED FOR UNKNOWN INDICATION
     Dosage: 4 DOSAGE FORMS DAILY;
     Route: 065
  5. OXYTETRACYCLINE [Concomitant]
     Indication: PRODUCT USED FOR UNKNOWN INDICATION
     Dosage: 500 MILLIGRAM DAILY;
     Route: 065
  6. CHLORAMPHENICOL EYE OINTMENT [Concomitant]
     Indication: PRODUCT USED FOR UNKNOWN INDICATION
     Route: 047
  7. PHENYTOIN [Concomitant]
     Indication: PRODUCT USED FOR UNKNOWN INDICATION
     Dosage: 200 MILLIGRAM DAILY;
     Route: 048

REACTIONS (6)
  - Delusion [Recovered/Resolved]
  - Abnormal behaviour [Recovered/Resolved]
  - Muscle spasms [Recovered/Resolved]
  - Convulsion [Unknown]
  - Lower respiratory tract infection [Unknown]
  - Hallucination [Recovered/Resolved]
